FAERS Safety Report 11455608 (Version 1)
Quarter: 2015Q3

REPORT INFORMATION
  Report Type: Spontaneous
  Country: US (occurrence: US)
  Receive Date: 20150903
  Receipt Date: 20150903
  Transmission Date: 20151125
  Serious: No
  Sender: FDA-Public Use
  Company Number: US-BEH-2014044794

PATIENT
  Age: 50 Year
  Sex: Female
  Weight: 56 kg

DRUGS (30)
  1. AUGMENTIN [Concomitant]
     Active Substance: AMOXICILLIN\CLAVULANATE POTASSIUM
  2. PROAIR HFA [Concomitant]
     Active Substance: ALBUTEROL SULFATE
  3. STERILE WATER [Concomitant]
     Active Substance: WATER
  4. ZEMAIRA [Suspect]
     Active Substance: .ALPHA.1-PROTEINASE INHIBITOR HUMAN
     Indication: ALPHA-1 ANTI-TRYPSIN DEFICIENCY
     Route: 042
  5. HEPARIN [Concomitant]
     Active Substance: HEPARIN SODIUM
  6. EPIPEN [Concomitant]
     Active Substance: EPINEPHRINE
  7. LMX [Concomitant]
     Active Substance: LIDOCAINE
  8. POTASSIUM [Concomitant]
     Active Substance: POTASSIUM
  9. HYDROCODONE-CHLORPHENIRAM [Concomitant]
     Active Substance: CHLORPHENIRAMINE HYDROCHLORIDE\HYDROCODONE
  10. CATHFLO ACTIVASE [Concomitant]
     Active Substance: ALTEPLASE
  11. SODIUM CHLORIDE. [Concomitant]
     Active Substance: SODIUM CHLORIDE
  12. OMEPRAZOLE. [Concomitant]
     Active Substance: OMEPRAZOLE
  13. OXYGEN. [Concomitant]
     Active Substance: OXYGEN
  14. HYDROCODON-ACETAMINOPHEN [Concomitant]
     Active Substance: ACETAMINOPHEN\HYDROCODONE
  15. LORAZEPAM. [Concomitant]
     Active Substance: LORAZEPAM
  16. XANAX [Concomitant]
     Active Substance: ALPRAZOLAM
  17. PROMETHAZINE/CODEINE [Concomitant]
     Active Substance: CODEINE\PROMETHAZINE
  18. PANTOPRAZOLE [Concomitant]
     Active Substance: PANTOPRAZOLE SODIUM
  19. OXYCODONE-ACETAMINOPHEN [Concomitant]
     Active Substance: ACETAMINOPHEN\OXYCODONE HYDROCHLORIDE
  20. ALL OTHER THERAPEUTIC PRODUCTS [Concomitant]
     Active Substance: UNSPECIFIED INGREDIENT
  21. DIPHENHYDRAMINE. [Concomitant]
     Active Substance: DIPHENHYDRAMINE
  22. LASIX [Concomitant]
     Active Substance: FUROSEMIDE
  23. MUCINEX ER [Concomitant]
  24. PROMETHAZINE [Concomitant]
     Active Substance: PROMETHAZINE\PROMETHAZINE HYDROCHLORIDE
  25. ALL OTHER THERAPEUTIC PRODUCTS [Concomitant]
     Active Substance: UNSPECIFIED INGREDIENT
  26. AVELOX [Concomitant]
     Active Substance: MOXIFLOXACIN HYDROCHLORIDE
  27. ZOFRAN [Concomitant]
     Active Substance: ONDANSETRON HYDROCHLORIDE
  28. ALBUTEROL. [Concomitant]
     Active Substance: ALBUTEROL
  29. PREDNISONE. [Concomitant]
     Active Substance: PREDNISONE
  30. IPRAT-ALBUT [Concomitant]

REACTIONS (2)
  - Vomiting [Unknown]
  - Nausea [Unknown]

NARRATIVE: CASE EVENT DATE: 20140826
